FAERS Safety Report 10994918 (Version 2)
Quarter: 2015Q2

REPORT INFORMATION
  Report Type: Spontaneous
  Country: US (occurrence: US)
  Receive Date: 20150407
  Receipt Date: 20150612
  Transmission Date: 20150821
  Serious: Yes (Hospitalization, Other)
  Sender: FDA-Public Use
  Company Number: US-ELI_LILLY_AND_COMPANY-US201503009514

PATIENT
  Age: 53 Year
  Sex: Female
  Weight: 87.98 kg

DRUGS (3)
  1. INSULIN HUMAN [Suspect]
     Active Substance: INSULIN HUMAN
     Indication: BLOOD GLUCOSE ABNORMAL
     Dosage: 10 DF, BID
     Route: 058
     Dates: start: 1987, end: 20150319
  2. HUMULIN N [Suspect]
     Active Substance: INSULIN HUMAN
     Dosage: 30 DF, EACH EVENING
     Route: 058
     Dates: start: 1987, end: 20150319
  3. HUMULIN N [Suspect]
     Active Substance: INSULIN HUMAN
     Indication: BLOOD GLUCOSE ABNORMAL
     Dosage: 35 DF, EACH MORNING
     Route: 058
     Dates: start: 1987, end: 20150319

REACTIONS (3)
  - Seizure [Recovered/Resolved]
  - Incorrect dosage administered [Recovered/Resolved]
  - Hypoglycaemic coma [Recovered/Resolved]

NARRATIVE: CASE EVENT DATE: 20150319
